FAERS Safety Report 7113317-7 (Version None)
Quarter: 2010Q4

REPORT INFORMATION
  Report Type: 
  Country: None (occurrence: None)
  Receive Date: 20101119
  Receipt Date: 20100907
  Transmission Date: 20110411
  Serious: No
  Sender: FDA-Public Use
  Company Number: A0878683A

PATIENT
  Age: 40 Year
  Sex: Female

DRUGS (3)
  1. WELLBUTRIN [Suspect]
     Indication: DEPRESSION
     Dosage: 200MG TWICE PER DAY
     Route: 048
     Dates: start: 20100824
  2. UNSPECIFIED MEDICATION [Suspect]
     Route: 065
  3. LOESTRIN FE 1/20 [Concomitant]

REACTIONS (2)
  - MALAISE [None]
  - NAUSEA [None]
